FAERS Safety Report 18252114 (Version 3)
Quarter: 2021Q3

REPORT INFORMATION
  Report Type: Spontaneous
  Country: US (occurrence: US)
  Receive Date: 20200910
  Receipt Date: 20210914
  Transmission Date: 20211014
  Serious: No
  Sender: FDA-Public Use
  Company Number: US-FARMAPROD-202003-0242

PATIENT
  Sex: Male
  Weight: 95.34 kg

DRUGS (15)
  1. FAMVIR [Concomitant]
     Active Substance: FAMCICLOVIR
     Dates: start: 20191011
  2. OXERVATE [Suspect]
     Active Substance: CENEGERMIN-BKBJ
     Indication: PUNCTATE KERATITIS
     Route: 047
     Dates: start: 20210330, end: 20210524
  3. OXYCODONE HYDROCHLORIDE. [Concomitant]
     Active Substance: OXYCODONE HYDROCHLORIDE
  4. OXERVATE [Suspect]
     Active Substance: CENEGERMIN-BKBJ
     Route: 047
     Dates: start: 20210622
  5. METOCLOPRAMIDE HCL [Concomitant]
     Active Substance: METOCLOPRAMIDE HYDROCHLORIDE
  6. PREDNISOLON [Concomitant]
     Active Substance: PREDNISOLONE
  7. FAMCICLOVIR. [Concomitant]
     Active Substance: FAMCICLOVIR
  8. PRED ACETATE [Concomitant]
     Dosage: 1 DROP TWICE DAILY ON EACH EYE
     Route: 047
     Dates: start: 20180904
  9. CYCLOBENZAPRINE HCL [Concomitant]
     Active Substance: CYCLOBENZAPRINE HYDROCHLORIDE
  10. PANTOPRAZOLE SODIUM. [Concomitant]
     Active Substance: PANTOPRAZOLE SODIUM
  11. LOTEMAX [Concomitant]
     Active Substance: LOTEPREDNOL ETABONATE
  12. OXERVATE [Suspect]
     Active Substance: CENEGERMIN-BKBJ
     Indication: NEUROTROPHIC KERATOPATHY
     Route: 047
     Dates: start: 20200109, end: 20200305
  13. OXERVATE [Suspect]
     Active Substance: CENEGERMIN-BKBJ
     Indication: ULCERATIVE KERATITIS
     Route: 047
     Dates: start: 20210125, end: 20210322
  14. AZITHROMYCIN ANHYDROUS. [Concomitant]
     Active Substance: AZITHROMYCIN ANHYDROUS
  15. FAMOTIDINE. [Concomitant]
     Active Substance: FAMOTIDINE

REACTIONS (6)
  - Eye infection [Recovered/Resolved]
  - Eye irritation [Unknown]
  - Photophobia [Recovering/Resolving]
  - Eyelid irritation [Unknown]
  - Malaise [Not Recovered/Not Resolved]
  - Eye pain [Unknown]
